FAERS Safety Report 7381524-4 (Version None)
Quarter: 2011Q1

REPORT INFORMATION
  Report Type: 
  Country: None (occurrence: None)
  Receive Date: 20110329
  Receipt Date: 20110323
  Transmission Date: 20110831
  Serious: Yes (Death, Other)
  Sender: FDA-Public Use
  Company Number: GB-MERCK-1103GBR00114

PATIENT
  Age: 81 Year
  Sex: Male

DRUGS (4)
  1. FUSIDATE SODIUM [Suspect]
     Indication: DIABETIC FOOT
     Route: 048
  2. FUSIDATE SODIUM [Suspect]
     Indication: OSTEOMYELITIS
     Route: 048
  3. ZOCOR [Suspect]
     Route: 048
  4. FLOXACILLIN [Concomitant]
     Indication: OSTEOMYELITIS
     Route: 065

REACTIONS (3)
  - RHABDOMYOLYSIS [None]
  - RENAL FAILURE ACUTE [None]
  - DRUG INTERACTION [None]
